FAERS Safety Report 21195000 (Version 4)
Quarter: 2023Q1

REPORT INFORMATION
  Report Type: Report from Study
  Country: IL (occurrence: IL)
  Receive Date: 20220810
  Receipt Date: 20230104
  Transmission Date: 20230418
  Serious: Yes (Hospitalization, Other)
  Sender: FDA-Public Use
  Company Number: IL-GLAXOSMITHKLINE-IL2022EME115668

PATIENT

DRUGS (2)
  1. MEPOLIZUMAB [Suspect]
     Active Substance: MEPOLIZUMAB
     Indication: Asthma
     Dosage: 100 MG
  2. MEPOLIZUMAB [Suspect]
     Active Substance: MEPOLIZUMAB
     Indication: Eosinophilic granulomatosis with polyangiitis
     Dosage: 300 MG

REACTIONS (10)
  - Immune system disorder [Unknown]
  - Eosinophilic granulomatosis with polyangiitis [Unknown]
  - Inflammation [Unknown]
  - Eosinophil count increased [Unknown]
  - Malaise [Unknown]
  - Respiratory disorder [Unknown]
  - Condition aggravated [Unknown]
  - Dyspnoea [Unknown]
  - Vomiting [Unknown]
  - Inappropriate schedule of product administration [Unknown]
